FAERS Safety Report 18733394 (Version 1)
Quarter: 2021Q1

REPORT INFORMATION
  Report Type: Spontaneous
  Country: US (occurrence: US)
  Receive Date: 20210113
  Receipt Date: 20210113
  Transmission Date: 20210419
  Serious: No
  Sender: FDA-Public Use
  Company Number: US-BEH-2021126992

PATIENT
  Age: 72 Year
  Sex: Female

DRUGS (4)
  1. ZEMAIRA [Suspect]
     Active Substance: .ALPHA.1-PROTEINASE INHIBITOR HUMAN
     Indication: ALPHA-1 ANTITRYPSIN DEFICIENCY
     Dosage: 5017 INTERNATIONAL UNIT, QW
     Route: 042
  2. ZEMAIRA [Suspect]
     Active Substance: .ALPHA.1-PROTEINASE INHIBITOR HUMAN
     Dosage: 5017 INTERNATIONAL UNIT, TOT
     Route: 042
     Dates: start: 20201228, end: 20201228
  3. ZEMAIRA [Suspect]
     Active Substance: .ALPHA.1-PROTEINASE INHIBITOR HUMAN
     Indication: ALPHA-1 ANTITRYPSIN DEFICIENCY
     Dosage: 5017 INTERNATIONAL UNIT, QW
     Route: 042
  4. ZEMAIRA [Suspect]
     Active Substance: .ALPHA.1-PROTEINASE INHIBITOR HUMAN
     Dosage: 5017 INTERNATIONAL UNIT, TOT
     Route: 042
     Dates: start: 20201228, end: 20201228

REACTIONS (3)
  - Treatment noncompliance [Unknown]
  - Ill-defined disorder [Unknown]
  - No adverse event [Unknown]

NARRATIVE: CASE EVENT DATE: 202012
